FAERS Safety Report 18272457 (Version 1)
Quarter: 2020Q3

REPORT INFORMATION
  Report Type: Spontaneous
  Country: US (occurrence: US)
  Receive Date: 20200916
  Receipt Date: 20200916
  Transmission Date: 20201103
  Serious: No
  Sender: FDA-Public Use
  Company Number: US-BIODELIVERY SCIENCES INTERNATIONAL-2020BDSI0370

PATIENT
  Age: 62 Year
  Sex: Male
  Weight: 145.28 kg

DRUGS (2)
  1. BUPRENORPHINE. [Suspect]
     Active Substance: BUPRENORPHINE
     Indication: PAIN
     Dosage: UNKNOWN
     Route: 002
     Dates: start: 2019
  2. BUPRENORPHINE. [Suspect]
     Active Substance: BUPRENORPHINE
     Route: 002

REACTIONS (6)
  - Therapeutic response decreased [Unknown]
  - Poor quality product administered [Recovered/Resolved]
  - Nausea [Recovered/Resolved]
  - Oral administration complication [Unknown]
  - Vomiting [Recovered/Resolved]
  - Product colour issue [Unknown]

NARRATIVE: CASE EVENT DATE: 2019
